FAERS Safety Report 16123217 (Version 3)
Quarter: 2019Q2

REPORT INFORMATION
  Report Type: Spontaneous
  Country: NZ (occurrence: NZ)
  Receive Date: 20190327
  Receipt Date: 20190527
  Transmission Date: 20190711
  Serious: Yes (Life-Threatening, Hospitalization, Other)
  Sender: FDA-Public Use
  Company Number: NZ-PFIZER INC-2019124191

PATIENT
  Age: 10 Year
  Sex: Female
  Weight: 30 kg

DRUGS (10)
  1. EPINEPHRINE. [Suspect]
     Active Substance: EPINEPHRINE
     Dosage: 0.2 MG, UNK
     Route: 040
  2. PROPOFOL. [Concomitant]
     Active Substance: PROPOFOL
     Indication: VENTRICULAR FIBRILLATION
     Dosage: UNK INFUSION
  3. EPINEPHRINE. [Suspect]
     Active Substance: EPINEPHRINE
     Dosage: 0.2 UG/KG, UNK INFUSION (0.2 UG/KG/MIN)
     Route: 040
  4. EPINEPHRINE. [Suspect]
     Active Substance: EPINEPHRINE
     Dosage: 0.5 UG/KG, UNK (0.2 UG/KG/MIN)
  5. EPINEPHRINE. [Suspect]
     Active Substance: EPINEPHRINE
     Dosage: UNK, TWO FURTHER EPINEPHRINE BOLUS
     Route: 040
  6. EPINEPHRINE. [Suspect]
     Active Substance: EPINEPHRINE
     Dosage: 0.05 UG/KG, UNK INFUSION (0.05 UG/KG/MIN)
     Route: 040
  7. AMIODARONE [Concomitant]
     Active Substance: AMIODARONE
     Indication: VENTRICULAR FIBRILLATION
     Dosage: UNK
  8. MAGNESIUM [Concomitant]
     Active Substance: MAGNESIUM
     Indication: VENTRICULAR FIBRILLATION
     Dosage: UNK
     Route: 042
  9. EPINEPHRINE. [Suspect]
     Active Substance: EPINEPHRINE
     Indication: VENTRICULAR FIBRILLATION
     Dosage: 0.8 MG, UNK (0.03 MG/KG)
     Route: 040
  10. ATROPINE. [Concomitant]
     Active Substance: ATROPINE
     Indication: VENTRICULAR FIBRILLATION
     Dosage: UNK

REACTIONS (5)
  - Ventricular extrasystoles [Recovered/Resolved]
  - Ventricular tachycardia [Recovered/Resolved]
  - Drug ineffective [Recovered/Resolved]
  - Cardiac arrest [Recovered/Resolved]
  - Ventricular fibrillation [Recovered/Resolved]
